FAERS Safety Report 8522502-9 (Version None)
Quarter: 2012Q3

REPORT INFORMATION
  Report Type: 
  Country: None (occurrence: None)
  Receive Date: 20120719
  Receipt Date: 20120709
  Transmission Date: 20120928
  Serious: No
  Sender: FDA-Public Use
  Company Number: US-B.I. PHARMACEUTICALS,INC./RIDGEFIELD-2012-BP-15275BP

PATIENT
  Sex: Male

DRUGS (3)
  1. FLOMAX [Suspect]
     Indication: BENIGN PROSTATIC HYPERPLASIA
     Dosage: 0.4 MG
     Dates: start: 20090101
  2. AVODART [Concomitant]
     Indication: BENIGN PROSTATIC HYPERPLASIA
     Dates: start: 20100101
  3. EYE DROPS [Concomitant]
     Indication: GLAUCOMA
     Dates: start: 20120101

REACTIONS (3)
  - MUSCLE SPASMS [None]
  - CATARACT [None]
  - MICTURITION URGENCY [None]
